FAERS Safety Report 9157149 (Version 1)
Quarter: 2013Q1

REPORT INFORMATION
  Report Type: Spontaneous
  Country: IT (occurrence: IT)
  Receive Date: 20130312
  Receipt Date: 20130312
  Transmission Date: 20140127
  Serious: Yes (Other)
  Sender: FDA-Public Use
  Company Number: IT-MYLANLABS-2013S1004758

PATIENT
  Age: 85 Year
  Sex: Male

DRUGS (9)
  1. PANTOPRAZOLE [Suspect]
     Indication: HYPERCHLORHYDRIA
     Route: 048
     Dates: start: 20121220, end: 20121226
  2. COUMADIN [Suspect]
     Indication: ATRIAL FIBRILLATION
     Route: 048
     Dates: start: 20090727, end: 20121226
  3. COUMADIN [Suspect]
     Indication: ATRIAL FIBRILLATION
  4. LOPRESOR [Concomitant]
     Indication: PRODUCT USED FOR UNKNOWN INDICATION
  5. LASIX [Concomitant]
     Indication: PRODUCT USED FOR UNKNOWN INDICATION
  6. CARDIOASPIRIN [Concomitant]
     Indication: PRODUCT USED FOR UNKNOWN INDICATION
  7. KCL [Concomitant]
     Indication: PRODUCT USED FOR UNKNOWN INDICATION
  8. SIVASTIN [Concomitant]
     Indication: PRODUCT USED FOR UNKNOWN INDICATION
  9. ENALAPRIL [Concomitant]
     Indication: PRODUCT USED FOR UNKNOWN INDICATION

REACTIONS (5)
  - International normalised ratio increased [Recovered/Resolved]
  - Asthenia [Recovered/Resolved]
  - Insomnia [Recovered/Resolved]
  - Nasal congestion [Recovered/Resolved]
  - Paraesthesia [Recovered/Resolved]
